FAERS Safety Report 4543620-6 (Version None)
Quarter: 2005Q1

REPORT INFORMATION
  Report Type: 
  Country: None (occurrence: None)
  Receive Date: 20050103
  Receipt Date: 20041224
  Transmission Date: 20050727
  Serious: Yes (Other)
  Sender: FDA-Public Use
  Company Number: JP-GLAXOSMITHKLINE-B0362959A

PATIENT
  Age: 36 Year
  Sex: Female

DRUGS (3)
  1. PAXIL [Suspect]
     Indication: PANIC DISORDER
     Route: 048
     Dates: start: 20001211, end: 20010403
  2. LUVOX [Concomitant]
     Route: 048
     Dates: start: 20001211, end: 20010109
  3. HANGE-KOBOKU-TO [Concomitant]
     Dosage: 2.5MG THREE TIMES PER DAY
     Route: 048
     Dates: start: 20001211

REACTIONS (1)
  - GENITAL HAEMORRHAGE [None]
